FAERS Safety Report 9114399 (Version 1)
Quarter: 2013Q1

REPORT INFORMATION
  Report Type: Spontaneous
  Country: US (occurrence: None)
  Receive Date: 20130220
  Receipt Date: 20130220
  Transmission Date: 20140127
  Serious: Yes (Other)
  Sender: FDA-Public Use
  Company Number: None

PATIENT
  Age: 51 Year
  Sex: Female
  Weight: 69.4 kg

DRUGS (2)
  1. PROGESTERONE [Suspect]
     Dosage: 1 CAPSULE  AT NIGHT  PO?02/10/2013  --  02/13/2013
     Route: 048
     Dates: start: 20130210, end: 20130213
  2. PROGESTERONE [Suspect]
     Dosage: 1 CAPSULE  AT NIGHT  PO?02/10/2013  --  02/13/2013
     Route: 048
     Dates: start: 20130210, end: 20130213

REACTIONS (5)
  - Fall [None]
  - Dizziness [None]
  - Headache [None]
  - Somnolence [None]
  - Product substitution issue [None]
